FAERS Safety Report 16311074 (Version 4)
Quarter: 2020Q1

REPORT INFORMATION
  Report Type: Spontaneous
  Country: US (occurrence: US)
  Receive Date: 20190514
  Receipt Date: 20200106
  Transmission Date: 20200409
  Serious: Yes (Other)
  Sender: FDA-Public Use
  Company Number: US-GLAXOSMITHKLINE-US2019GSK083798

PATIENT
  Sex: Female

DRUGS (1)
  1. PREVACID [Suspect]
     Active Substance: LANSOPRAZOLE
     Indication: GASTROOESOPHAGEAL REFLUX DISEASE
     Dosage: UNK
     Route: 065

REACTIONS (11)
  - Renal impairment [Unknown]
  - Renal failure [Unknown]
  - Renal injury [Unknown]
  - Renal tubular dysfunction [Unknown]
  - Renal cyst [Unknown]
  - Chronic kidney disease [Unknown]
  - Hyperchlorhydria [Unknown]
  - Dialysis [Unknown]
  - Rebound effect [Unknown]
  - Nephropathy [Unknown]
  - Essential hypertension [Unknown]
